FAERS Safety Report 5085739-X (Version None)
Quarter: 2006Q3

REPORT INFORMATION
  Report Type: 
  Country: None (occurrence: None)
  Receive Date: 20060822
  Receipt Date: 20060809
  Transmission Date: 20061208
  Serious: Yes (Disabling)
  Sender: FDA-Public Use
  Company Number: US-KINGPHARMUSA00001-K200601025

PATIENT
  Age: 74 Year
  Sex: Female

DRUGS (8)
  1. ALTACE [Suspect]
     Indication: HYPERTENSION
     Dosage: UNK, QD
     Route: 048
  2. HYDROCHLOROTHIAZIDE [Suspect]
  3. ASS ^ISIS^ [Concomitant]
     Dosage: 100 MG, QD
     Route: 048
  4. CONCOR [Concomitant]
     Dosage: 2.5 MG, QD
     Route: 048
  5. SORTIS ^GOEDECKE^ [Concomitant]
     Dosage: 20 MG, QD
     Route: 048
  6. NORVASC [Concomitant]
     Dosage: 5 MG, QD
     Route: 048
  7. PRAVASIN [Concomitant]
     Indication: HYPERTENSION
     Dosage: 20 UNK, QD
     Route: 048
     Dates: start: 19970101
  8. AROVIT [Concomitant]
     Dosage: UNK, QD
     Route: 048
     Dates: start: 19890101, end: 20020101

REACTIONS (3)
  - CONDITION AGGRAVATED [None]
  - VISION BLURRED [None]
  - VISUAL ACUITY REDUCED [None]
